FAERS Safety Report 7201441-X (Version None)
Quarter: 2010Q4

REPORT INFORMATION
  Report Type: 
  Country: None (occurrence: None)
  Receive Date: 20101215
  Receipt Date: 20101206
  Transmission Date: 20110411
  Serious: Yes (Hospitalization, Disabling)
  Sender: FDA-Public Use
  Company Number: 2010SP063647

PATIENT
  Age: 22 Year
  Sex: Female

DRUGS (3)
  1. SAPHRIS [Suspect]
     Indication: BIPOLAR DISORDER
     Dosage: BID; SL
     Route: 060
  2. SAPHRIS [Suspect]
     Indication: SUICIDAL IDEATION
     Dosage: BID; SL
     Route: 060
  3. LORAZEPAM [Concomitant]

REACTIONS (3)
  - FATIGUE [None]
  - SLUGGISHNESS [None]
  - TACHYPHRENIA [None]
